FAERS Safety Report 21286891 (Version 1)
Quarter: 2022Q3

REPORT INFORMATION
  Report Type: Spontaneous
  Country: US (occurrence: None)
  Receive Date: 20220902
  Receipt Date: 20220902
  Transmission Date: 20221026
  Serious: Yes (Death, Hospitalization)
  Sender: FDA-Public Use
  Company Number: None

PATIENT
  Age: 15 Year
  Sex: Female
  Weight: 66.9 kg

DRUGS (4)
  1. CYTARABINE [Suspect]
     Active Substance: CYTARABINE
     Dates: end: 20220805
  2. DAUNORUBICIN [Suspect]
     Active Substance: DAUNORUBICIN
     Dates: end: 20220822
  3. PREDNISOLONE [Suspect]
     Active Substance: PREDNISOLONE
     Dates: end: 20220829
  4. VINCRISTINE SULFATE [Suspect]
     Active Substance: VINCRISTINE SULFATE
     Dates: end: 20220822

REACTIONS (12)
  - Vision blurred [None]
  - Abdominal pain [None]
  - Constipation [None]
  - Mental status changes [None]
  - Haemoglobin decreased [None]
  - Cerebral infarction [None]
  - Meningitis [None]
  - Bacillus infection [None]
  - Blood culture positive [None]
  - Febrile neutropenia [None]
  - SARS-CoV-2 test positive [None]
  - Brain oedema [None]

NARRATIVE: CASE EVENT DATE: 20220811
